FAERS Safety Report 7256547 (Version 2)
Quarter: 2014Q3

REPORT INFORMATION
  Report Type: Spontaneous
  Country: US (occurrence: None)
  Receive Date: 20100113
  Receipt Date: 20140904
  Transmission Date: 20150326
  Serious: Yes (Other)
  Sender: FDA-Public Use
  Company Number: 2010S1000007

PATIENT
  Age: 53 Year
  Sex: Female

DRUGS (15)
  1. FLONASE [Concomitant]
     Active Substance: FLUTICASONE PROPIONATE
  2. PHOSPHO-SODA [Suspect]
     Active Substance: SODIUM PHOSPHATE, DIBASIC\SODIUM PHOSPHATE, MONOBASIC
     Indication: COLONOSCOPY
     Dosage: PO
     Route: 048
     Dates: start: 20060607, end: 20060607
  3. BENICAR [Concomitant]
     Active Substance: OLMESARTAN MEDOXOMIL
  4. PERCOCET (PARACETAMOL, OXYCODONE HYDROCHLORIDE, OXYCODONE TEREPHTHALATE) [Concomitant]
  5. TRAZODONE [Concomitant]
     Active Substance: TRAZODONE HYDROCHLORIDE
  6. XENICAL (ORLISTAT) [Concomitant]
  7. DULCOLAX (BISACODYL) [Suspect]
     Active Substance: BISACODYL
     Route: 048
  8. HYDROCHLOROTHIAZIDE (HYDROCHLOROTHIAZIDE) [Concomitant]
     Active Substance: HYDROCHLOROTHIAZIDE
  9. ZYRTEC [Concomitant]
     Active Substance: CETIRIZINE HYDROCHLORIDE
  10. AMBIEN [Concomitant]
     Active Substance: ZOLPIDEM TARTRATE
  11. LIPITOR [Concomitant]
     Active Substance: ATORVASTATIN CALCIUM
  12. ROZEREM (RAMELTEON) [Concomitant]
  13. AUGMENTIN (AMOXICILLIN SODIUM, CLAVULANATE POTASSIUM) [Concomitant]
  14. IBUPROFEN (IBUPROFEN) [Concomitant]
     Active Substance: IBUPROFEN
  15. ARTHROTEC (DICLOFENAC SODIUM, MISOPROSTOL) [Concomitant]

REACTIONS (10)
  - Renal failure acute [None]
  - Abdominal distension [None]
  - Hypophagia [None]
  - Eructation [None]
  - Renal tubular necrosis [None]
  - Tubulointerstitial nephritis [None]
  - Injury [None]
  - Nephrogenic anaemia [None]
  - Dehydration [None]
  - Diarrhoea [None]

NARRATIVE: CASE EVENT DATE: 200606
